FAERS Safety Report 10013042 (Version 3)
Quarter: 2014Q1

REPORT INFORMATION
  Report Type: Spontaneous
  Country: JP (occurrence: JP)
  Receive Date: 20140314
  Receipt Date: 20140323
  Transmission Date: 20141002
  Serious: Yes (Hospitalization)
  Sender: FDA-Public Use
  Company Number: JP-009507513-1403JPN007209

PATIENT
  Sex: 0

DRUGS (1)
  1. JANUVIA TABLETS 25MG [Suspect]
     Dosage: DAILY DOSAGE UNKNOWN
     Route: 048

REACTIONS (1)
  - Adverse reaction [Unknown]
